FAERS Safety Report 5043171-9 (Version None)
Quarter: 2006Q2

REPORT INFORMATION
  Report Type: 
  Country: None (occurrence: None)
  Receive Date: 20060628
  Receipt Date: 20050621
  Transmission Date: 20061013
  Serious: No
  Sender: FDA-Public Use
  Company Number: WAES 0506USA03362

PATIENT
  Sex: Female

DRUGS (3)
  1. INDOCIN [Suspect]
     Dosage: PO
     Route: 048
  2. PLAVIX [Concomitant]
  3. ASPIRIN [Concomitant]

REACTIONS (3)
  - ASTHENIA [None]
  - EPISTAXIS [None]
  - FATIGUE [None]
